FAERS Safety Report 7358111-7 (Version None)
Quarter: 2011Q1

REPORT INFORMATION
  Report Type: 
  Country: None (occurrence: None)
  Receive Date: 20110317
  Receipt Date: 20110304
  Transmission Date: 20110831
  Serious: Yes (Life-Threatening)
  Sender: FDA-Public Use
  Company Number: JP-GENENTECH-306874

PATIENT
  Sex: Female
  Weight: 47 kg

DRUGS (18)
  1. STEROID (NAME UNKNOWN) [Concomitant]
     Indication: PRODUCT USED FOR UNKNOWN INDICATION
     Dosage: UNK
     Dates: start: 20101013
  2. RESPLEN [Concomitant]
     Indication: PRODUCT USED FOR UNKNOWN INDICATION
     Dosage: UNK
     Dates: start: 20100720, end: 20100825
  3. SALBUTAMOL SULFATE [Concomitant]
     Indication: PRODUCT USED FOR UNKNOWN INDICATION
     Dosage: UNK
     Dates: start: 20100718, end: 20100803
  4. MUCODYNE [Concomitant]
     Indication: PRODUCT USED FOR UNKNOWN INDICATION
     Dosage: UNK
     Dates: start: 20100417, end: 20100511
  5. PARIET [Suspect]
     Indication: ASTHMA
     Dosage: 10 MG, BID
     Route: 048
     Dates: start: 20100718
  6. KIPRES [Suspect]
     Indication: ASTHMA
     Dosage: 10 MG, QD
     Route: 048
     Dates: start: 20091221, end: 20100910
  7. SULTANOL [Concomitant]
     Indication: PRODUCT USED FOR UNKNOWN INDICATION
     Dosage: UNK
     Dates: start: 20100317, end: 20100717
  8. OMALIZUMAB [Suspect]
     Indication: ASTHMA
     Dosage: 300 MG, Q2W
     Route: 058
     Dates: start: 20100803
  9. OMALIZUMAB [Suspect]
     Dosage: 300 MG, Q2W
     Route: 058
     Dates: start: 20100831, end: 20100831
  10. SYMBICORT [Suspect]
     Dosage: 4 DF, BID
     Dates: start: 20100330, end: 20100925
  11. ALUMINUM HYDROXIDE/MAGNESIUM HYDROXIDE [Concomitant]
     Indication: PRODUCT USED FOR UNKNOWN INDICATION
     Dosage: UNK
     Dates: start: 20100819, end: 20100826
  12. OMEPRAL [Concomitant]
     Indication: PRODUCT USED FOR UNKNOWN INDICATION
     Dosage: UNK
     Dates: start: 20100330, end: 20100716
  13. OMALIZUMAB [Suspect]
     Dosage: 300 MG, Q2W
     Route: 058
     Dates: start: 20100817
  14. PARIET [Suspect]
     Dosage: UNK MG, QD
     Route: 048
     Dates: start: 20100723, end: 20100910
  15. SYMBICORT [Suspect]
     Indication: ASTHMA
     Dosage: 2 DF, BID
     Dates: start: 20100128
  16. THEOPHYLLINE [Suspect]
     Indication: ASTHMA
     Dosage: 100 MG, BID
     Route: 048
     Dates: start: 20100511, end: 20100910
  17. PREDONINE [Concomitant]
     Indication: PRODUCT USED FOR UNKNOWN INDICATION
     Dosage: UNK
     Dates: start: 20100302, end: 20100626
  18. FERROUS CITRATE [Concomitant]
     Indication: PRODUCT USED FOR UNKNOWN INDICATION
     Dosage: UNK
     Dates: start: 20100707, end: 20100819

REACTIONS (4)
  - MALAISE [None]
  - CYTOMEGALOVIRUS TEST POSITIVE [None]
  - HEPATITIS [None]
  - EPSTEIN-BARR VIRUS ANTIBODY POSITIVE [None]
